FAERS Safety Report 5614736-8 (Version None)
Quarter: 2008Q1

REPORT INFORMATION
  Report Type: 
  Country: None (occurrence: None)
  Receive Date: 20080205
  Receipt Date: 20080123
  Transmission Date: 20080703
  Serious: Yes (Hospitalization)
  Sender: FDA-Public Use
  Company Number: US-ELI_LILLY_AND_COMPANY-US200801005107

PATIENT
  Age: 65 Year
  Sex: Female

DRUGS (2)
  1. BYETTA [Suspect]
     Dosage: 5 UG, UNK
     Dates: start: 20070601, end: 20070101
  2. BYETTA [Suspect]
     Dosage: 10 UG, UNK
     Dates: start: 20070101

REACTIONS (4)
  - NAUSEA [None]
  - PAIN [None]
  - PANCREATITIS CHRONIC [None]
  - VOMITING [None]
